FAERS Safety Report 7754242-8 (Version None)
Quarter: 2011Q3

REPORT INFORMATION
  Report Type: 
  Country: None (occurrence: None)
  Receive Date: 20110913
  Receipt Date: 20110825
  Transmission Date: 20111222
  Serious: Yes (Hospitalization)
  Sender: FDA-Public Use
  Company Number: 012262

PATIENT
  Age: 84 Year
  Sex: Female

DRUGS (20)
  1. INSULIN RETARD LEO (INSULIN INJECTION, ISOPHANE) [Concomitant]
  2. CLOPIDOGREL [Concomitant]
  3. ATORVASTATIN [Concomitant]
  4. POVIDONE IODINE [Concomitant]
  5. PEGAPTANIB SODIUM; PLACEBO (PEGAPTANIB SODIUM) UNKNOWN [Suspect]
     Indication: MACULAR OEDEMA
     Dosage: 0.3 MG, EVERY 6 WEEKS CYCLIC, INTRAOCULAR
     Route: 031
     Dates: start: 20091119, end: 20100913
  6. NICORANDIL (NICORANDIL) [Concomitant]
  7. AMLODIPINE [Concomitant]
  8. FUROSEMIDE [Concomitant]
  9. SIMVASTATIN [Concomitant]
  10. OFLOXACIN [Concomitant]
  11. LANSOPRAZOLE [Concomitant]
  12. PEGAPTANIB SODIUM; PLACEBO (PEGAPTANIB SODIUM) UNKNOWN [Suspect]
     Indication: MACULAR OEDEMA
     Dosage: EVERY 6 WEEKS CYCLIC, INTRAOCULAR
     Route: 031
     Dates: start: 20071210
  13. PHENYLEPHRINE (PHENYLEPHRINE) [Concomitant]
  14. GTN (GLYCERYL TRINITRATE) [Concomitant]
  15. ISOTARD (ISOSORBIDE DINITRATE) [Concomitant]
  16. SENNA (SENNA) [Concomitant]
  17. MIXTARD HUMAN 70/30 [Concomitant]
  18. RAMIPRIL [Concomitant]
  19. TROPICAMIDE [Concomitant]
  20. ATENOLOL [Concomitant]

REACTIONS (1)
  - ANGINA UNSTABLE [None]
